FAERS Safety Report 20058518 (Version 2)
Quarter: 2021Q4

REPORT INFORMATION
  Report Type: Spontaneous
  Country: US (occurrence: US)
  Receive Date: 20211111
  Receipt Date: 20211231
  Transmission Date: 20220303
  Serious: No
  Sender: FDA-Public Use
  Company Number: US-SAGE-2021SAGE000107

PATIENT
  Sex: Female

DRUGS (1)
  1. ZULRESSO [Suspect]
     Active Substance: BREXANOLONE
     Indication: Perinatal depression
     Dosage: UNK
     Route: 042
     Dates: start: 202111

REACTIONS (4)
  - Drug ineffective [Unknown]
  - Depressed mood [Unknown]
  - Discouragement [Unknown]
  - Crying [Unknown]

NARRATIVE: CASE EVENT DATE: 20211101
